FAERS Safety Report 19989029 (Version 1)
Quarter: 2021Q4

REPORT INFORMATION
  Report Type: Spontaneous
  Country: US (occurrence: US)
  Receive Date: 20211024
  Receipt Date: 20211024
  Transmission Date: 20220303
  Serious: Yes (Hospitalization)
  Sender: FDA-Public Use
  Company Number: US-DRREDDYS-SPO/USA/21/0142741

PATIENT
  Age: 11 Year
  Sex: Male

DRUGS (2)
  1. IBUPROFEN [Suspect]
     Active Substance: IBUPROFEN
     Indication: Illness
  2. IBUPROFEN [Suspect]
     Active Substance: IBUPROFEN
     Indication: Costochondritis

REACTIONS (2)
  - Haematemesis [Recovering/Resolving]
  - Gastritis [Recovering/Resolving]
